FAERS Safety Report 15390361 (Version 1)
Quarter: 2018Q3

REPORT INFORMATION
  Report Type: Spontaneous
  Country: US (occurrence: US)
  Receive Date: 20180908
  Receipt Date: 20180908
  Transmission Date: 20181010
  Serious: Yes (Hospitalization)
  Sender: FDA-Public Use
  Company Number: None

PATIENT
  Age: 44 Year
  Sex: Female
  Weight: 110.25 kg

DRUGS (6)
  1. ADVOCARE MNSE [Concomitant]
  2. ADVOCARE CATALYST ASTAXANTHIN [Concomitant]
  3. ADVOCARE BIO TUNE [Concomitant]
  4. ADVOCARE JOINT PROMOTION [Concomitant]
  5. ADVOCARE SPARK [Concomitant]
  6. XARELTO [Suspect]
     Active Substance: RIVAROXABAN
     Indication: DEEP VEIN THROMBOSIS
     Dosage: ?          QUANTITY:1 TABLET
     Route: 048
     Dates: start: 20180905

REACTIONS (4)
  - Flatulence [None]
  - Chest pain [None]
  - Dyspnoea [None]
  - Abdominal distension [None]

NARRATIVE: CASE EVENT DATE: 20180907
